FAERS Safety Report 8106770-3 (Version None)
Quarter: 2012Q1

REPORT INFORMATION
  Report Type: 
  Country: None (occurrence: None)
  Receive Date: 20120202
  Receipt Date: 20120130
  Transmission Date: 20120608
  Serious: No
  Sender: FDA-Public Use
  Company Number: US-BAYER-2012-010286

PATIENT
  Sex: Female

DRUGS (6)
  1. FLOMAX [Concomitant]
  2. BETASERON [Suspect]
     Dosage: 0.25 MG, UNK
     Route: 058
  3. ACETYLSALICYLIC ACID SRT [Concomitant]
  4. CELEXA [Concomitant]
  5. MULTIVITAMIN PREPARATION + MINERAL SUPPLEMENT [Concomitant]
  6. BACLOFEN [Concomitant]

REACTIONS (1)
  - INJECTION SITE HAEMATOMA [None]
